FAERS Safety Report 8330093-0 (Version None)
Quarter: 2012Q2

REPORT INFORMATION
  Report Type: 
  Country: None (occurrence: None)
  Receive Date: 20120502
  Receipt Date: 20120424
  Transmission Date: 20120825
  Serious: Yes (Death, Hospitalization)
  Sender: FDA-Public Use
  Company Number: CH-FRI-1000030205

PATIENT
  Sex: Female

DRUGS (8)
  1. MARCUMAR [Suspect]
     Route: 048
     Dates: end: 20120321
  2. BELOZOK [Concomitant]
  3. SEROQUEL [Concomitant]
  4. ADALAT [Concomitant]
  5. ESCITALOPRAM [Suspect]
     Dosage: 10 MG
     Route: 048
     Dates: end: 20120321
  6. DIGOXIN [Concomitant]
  7. ARICEPT [Concomitant]
  8. TORSEMIDE [Concomitant]

REACTIONS (1)
  - CEREBRAL HAEMORRHAGE [None]
